FAERS Safety Report 14273520 (Version 2)
Quarter: 2017Q4

REPORT INFORMATION
  Report Type: Spontaneous
  Country: US (occurrence: US)
  Receive Date: 20171211
  Receipt Date: 20171229
  Transmission Date: 20180321
  Serious: No
  Sender: FDA-Public Use
  Company Number: US-ASTRAZENECA-2017SF25091

PATIENT
  Age: 694 Month
  Sex: Male
  Weight: 78.9 kg

DRUGS (4)
  1. BYDUREON [Suspect]
     Active Substance: EXENATIDE
     Indication: TYPE 2 DIABETES MELLITUS
     Route: 058
     Dates: start: 201711
  2. GLIMEPIRIDE. [Suspect]
     Active Substance: GLIMEPIRIDE
     Route: 048
  3. METFORMIN [Suspect]
     Active Substance: METFORMIN HYDROCHLORIDE
     Dosage: NON AZ, 1000 MG, TWO TIMES A DAY
     Route: 048
  4. BYDUREON [Suspect]
     Active Substance: EXENATIDE
     Indication: GLYCOSYLATED HAEMOGLOBIN INCREASED
     Route: 058
     Dates: start: 201711

REACTIONS (6)
  - Chills [Unknown]
  - Weight decreased [Unknown]
  - Rhinorrhoea [Unknown]
  - Wrong technique in device usage process [Unknown]
  - Device defective [Unknown]
  - Nausea [Unknown]

NARRATIVE: CASE EVENT DATE: 201711
